FAERS Safety Report 9664288 (Version 1)
Quarter: 2013Q4

REPORT INFORMATION
  Report Type: Spontaneous
  Country: IT (occurrence: IT)
  Receive Date: 20131101
  Receipt Date: 20131101
  Transmission Date: 20140711
  Serious: Yes (Other)
  Sender: FDA-Public Use
  Company Number: IT-TEVA-439508ISR

PATIENT
  Age: 35 Year
  Sex: Male

DRUGS (2)
  1. QUETIAPINA [Suspect]
     Dates: start: 20131002, end: 20131002
  2. LORAZEPAM [Concomitant]

REACTIONS (4)
  - Tachycardia [Recovered/Resolved]
  - Sopor [Recovered/Resolved]
  - Drug abuse [Recovered/Resolved]
  - Self injurious behaviour [Recovered/Resolved]
